FAERS Safety Report 5826638-2 (Version None)
Quarter: 2008Q3

REPORT INFORMATION
  Report Type: 
  Country: None (occurrence: None)
  Receive Date: 20080730
  Receipt Date: 20080725
  Transmission Date: 20090109
  Serious: Yes (Death)
  Sender: FDA-Public Use
  Company Number: JP-JNJFOC-20080706532

PATIENT
  Sex: Male
  Weight: 48 kg

DRUGS (1)
  1. ITRIZOLE [Suspect]
     Indication: BRONCHOPULMONARY ASPERGILLOSIS
     Route: 041

REACTIONS (3)
  - HEPATIC FUNCTION ABNORMAL [None]
  - MYELODYSPLASTIC SYNDROME [None]
  - RENAL IMPAIRMENT [None]
